FAERS Safety Report 7506085-8 (Version None)
Quarter: 2011Q2

REPORT INFORMATION
  Report Type: 
  Country: None (occurrence: None)
  Receive Date: 20110526
  Receipt Date: 20110520
  Transmission Date: 20111010
  Serious: Yes (Death)
  Sender: FDA-Public Use
  Company Number: JP-ROCHE-779120

PATIENT
  Sex: Male
  Weight: 73.1 kg

DRUGS (15)
  1. OXALIPLATIN [Suspect]
     Route: 041
     Dates: start: 20100622, end: 20100622
  2. OXALIPLATIN [Suspect]
     Route: 041
     Dates: start: 20100713, end: 20100713
  3. PYDOXAL [Concomitant]
     Route: 048
     Dates: start: 20100511, end: 20101015
  4. CAPECITABINE [Suspect]
     Route: 048
     Dates: start: 20100601, end: 20100615
  5. OXALIPLATIN [Suspect]
     Route: 041
     Dates: start: 20100803, end: 20100803
  6. CAPECITABINE [Suspect]
     Route: 048
     Dates: start: 20100622, end: 20100706
  7. OXALIPLATIN [Suspect]
     Indication: COLON CANCER
     Route: 041
     Dates: start: 20100511, end: 20100511
  8. OXALIPLATIN [Suspect]
     Route: 041
     Dates: start: 20100914, end: 20100914
  9. CAPECITABINE [Suspect]
     Indication: COLON CANCER
     Route: 048
     Dates: start: 20100511, end: 20100525
  10. CAPECITABINE [Suspect]
     Route: 048
     Dates: start: 20100713, end: 20100727
  11. CAPECITABINE [Suspect]
     Route: 048
     Dates: start: 20100914, end: 20100928
  12. OXALIPLATIN [Suspect]
     Dosage: DOSE DECREASED
     Route: 041
     Dates: start: 20100824, end: 20100824
  13. CAPECITABINE [Suspect]
     Route: 048
     Dates: start: 20100803, end: 20100817
  14. CAPECITABINE [Suspect]
     Route: 048
     Dates: start: 20100824, end: 20100907
  15. OXALIPLATIN [Suspect]
     Route: 041
     Dates: start: 20100601, end: 20100601

REACTIONS (3)
  - NEUROPATHY PERIPHERAL [None]
  - DEATH [None]
  - STOMATITIS [None]
